FAERS Safety Report 6863955-1 (Version None)
Quarter: 2010Q3

REPORT INFORMATION
  Report Type: 
  Country: None (occurrence: None)
  Receive Date: 20100721
  Receipt Date: 20080412
  Transmission Date: 20110219
  Serious: No
  Sender: FDA-Public Use
  Company Number: US-PFIZER INC-2008023996

PATIENT
  Sex: Female

DRUGS (9)
  1. CHANTIX [Suspect]
  2. ATENOLOL [Interacting]
  3. GALENIC /BENAZEPRIL/HYDROCHLOROTHIAZIDE/ [Interacting]
  4. SULAR [Interacting]
  5. ZETIA [Interacting]
  6. PRAVASTATIN [Interacting]
  7. FLONASE [Concomitant]
  8. ALBUTEROL [Concomitant]
  9. FLOVENT [Concomitant]

REACTIONS (3)
  - ABDOMINAL PAIN UPPER [None]
  - DRUG INTERACTION [None]
  - NAUSEA [None]
